FAERS Safety Report 19249553 (Version 3)
Quarter: 2021Q2

REPORT INFORMATION
  Report Type: Report from Study
  Country: US (occurrence: US)
  Receive Date: 20210512
  Receipt Date: 20210616
  Transmission Date: 20210717
  Serious: Yes (Hospitalization)
  Sender: FDA-Public Use
  Company Number: US-GILEAD-2021-0530195

PATIENT
  Sex: Female

DRUGS (3)
  1. ADCIRCA [Concomitant]
     Active Substance: TADALAFIL
  2. AMBRISENTAN [Suspect]
     Active Substance: AMBRISENTAN
     Indication: PRODUCT USED FOR UNKNOWN INDICATION
     Dosage: 10 MG, QD
     Route: 048
     Dates: start: 20200819
  3. REMODULIN [Concomitant]
     Active Substance: TREPROSTINIL

REACTIONS (9)
  - Pain [Unknown]
  - Pyrexia [Unknown]
  - Infusion site pain [Unknown]
  - SARS-CoV-2 test positive [Unknown]
  - Headache [Unknown]
  - Feeling of body temperature change [Unknown]
  - Dizziness [Unknown]
  - Dyspnoea [Unknown]
  - Hypersensitivity [Unknown]
